FAERS Safety Report 6820070-0 (Version None)
Quarter: 2010Q3

REPORT INFORMATION
  Report Type: 
  Country: None (occurrence: None)
  Receive Date: 20100707
  Receipt Date: 20100629
  Transmission Date: 20110219
  Serious: Yes (Other)
  Sender: FDA-Public Use
  Company Number: B0661677A

PATIENT
  Sex: Female
  Weight: 39.6 kg

DRUGS (6)
  1. ARIXTRA [Suspect]
     Indication: THROMBOSIS PROPHYLAXIS
     Dosage: 2.5MG PER DAY
     Route: 058
     Dates: start: 20100603, end: 20100609
  2. FUTHAN [Concomitant]
     Indication: PANCREATITIS
     Dosage: 20MG PER DAY
     Route: 042
     Dates: start: 20100603, end: 20100606
  3. INOVAN [Concomitant]
     Indication: CIRCULATORY COLLAPSE
     Route: 042
     Dates: start: 20100602, end: 20100605
  4. URSO 250 [Concomitant]
     Indication: PROPHYLAXIS
     Dosage: 6G PER DAY
     Route: 048
     Dates: start: 20100603
  5. PARIET [Concomitant]
     Indication: PROPHYLAXIS
     Dosage: 10MG PER DAY
     Route: 048
     Dates: start: 20100605
  6. LOXONIN [Concomitant]
     Indication: PAIN
     Dosage: 60MG PER DAY
     Route: 048
     Dates: start: 20100607

REACTIONS (11)
  - BLOOD FIBRINOGEN DECREASED [None]
  - C-REACTIVE PROTEIN INCREASED [None]
  - HAEMATOCRIT DECREASED [None]
  - HAEMOGLOBIN DECREASED [None]
  - MEAN PLATELET VOLUME DECREASED [None]
  - PLATELET COUNT DECREASED [None]
  - POST PROCEDURAL HAEMORRHAGE [None]
  - PROTHROMBIN TIME RATIO INCREASED [None]
  - PROTHROMBIN TIME SHORTENED [None]
  - RED BLOOD CELL COUNT DECREASED [None]
  - WHITE BLOOD CELL COUNT INCREASED [None]
